FAERS Safety Report 7628393-2 (Version None)
Quarter: 2011Q3

REPORT INFORMATION
  Report Type: 
  Country: None (occurrence: None)
  Receive Date: 20110722
  Receipt Date: 20110720
  Transmission Date: 20111222
  Serious: No
  Sender: FDA-Public Use
  Company Number: US-PFIZER INC-2011164918

PATIENT
  Sex: Male
  Weight: 61.224 kg

DRUGS (2)
  1. DILANTIN [Suspect]
     Indication: EPILEPSY
     Dosage: 100 MG, 3X/DAY
     Route: 048
     Dates: start: 19641101
  2. ACETYLSALICYLIC ACID [Concomitant]
     Dosage: 81 MG, UNK

REACTIONS (2)
  - INSOMNIA [None]
  - TREMOR [None]
